FAERS Safety Report 16247545 (Version 2)
Quarter: 2020Q4

REPORT INFORMATION
  Report Type: Spontaneous
  Country: US (occurrence: US)
  Receive Date: 20190428
  Receipt Date: 20201229
  Transmission Date: 20210113
  Serious: Yes (Hospitalization)
  Sender: FDA-Public Use
  Company Number: US-JNJFOC-20190422365

PATIENT
  Age: 45 Year
  Sex: Female

DRUGS (3)
  1. XARELTO [Suspect]
     Active Substance: RIVAROXABAN
     Indication: EMBOLISM ARTERIAL
  2. XARELTO [Suspect]
     Active Substance: RIVAROXABAN
     Indication: PULMONARY EMBOLISM
  3. XARELTO [Suspect]
     Active Substance: RIVAROXABAN
     Indication: CEREBROVASCULAR ACCIDENT PROPHYLAXIS
     Dosage: 15MG TWICE A DAY FOR 3 WEEKS AND 20 MG ONCE DAILY
     Route: 048
     Dates: start: 20180814, end: 201811

REACTIONS (2)
  - Internal haemorrhage [Unknown]
  - Uterine haemorrhage [Recovered/Resolved]

NARRATIVE: CASE EVENT DATE: 201808
